FAERS Safety Report 9857839 (Version 1)
Quarter: 2014Q1

REPORT INFORMATION
  Report Type: Spontaneous
  Country: GB (occurrence: GB)
  Receive Date: 20140131
  Receipt Date: 20140131
  Transmission Date: 20141002
  Serious: Yes (Disabling)
  Sender: FDA-Public Use
  Company Number: GB-ASTRAZENECA-2014SE05588

PATIENT
  Age: 60 Year
  Sex: Male
  Weight: 82.6 kg

DRUGS (14)
  1. ROSUVASTATIN [Suspect]
     Indication: HYPERCHOLESTEROLAEMIA
     Route: 048
  2. SIMVASTATIN [Suspect]
     Indication: HYPERCHOLESTEROLAEMIA
     Route: 048
     Dates: end: 20100404
  3. STATIN NOS [Suspect]
     Indication: HYPERCHOLESTEROLAEMIA
     Route: 065
  4. ASPIRIN [Concomitant]
  5. CO-CODAMOL [Concomitant]
  6. DEEP HEAT [Concomitant]
     Indication: ARTHRALGIA
     Dosage: DAILY
  7. GREEN-LIPPED MUSSEL [Concomitant]
  8. IBUPROFEN [Concomitant]
  9. INSULIN GLARGINE [Concomitant]
  10. INSULIN GLARGINE [Concomitant]
  11. LAXIDO [Concomitant]
     Indication: GASTROINTESTINAL DISORDER
     Dosage: AS REQUIRED
  12. METFORMIN [Concomitant]
  13. OMEPRAZOLE [Concomitant]
     Dates: start: 201311
  14. VOLTAROL [Concomitant]
     Indication: ARTHRALGIA

REACTIONS (2)
  - Muscle atrophy [Recovered/Resolved]
  - Amnesia [Recovered/Resolved]
